FAERS Safety Report 5387141-X (Version None)
Quarter: 2007Q3

REPORT INFORMATION
  Report Type: 
  Country: None (occurrence: None)
  Receive Date: 20070711
  Receipt Date: 20070627
  Transmission Date: 20080115
  Serious: Yes (Other)
  Sender: FDA-Public Use
  Company Number: 235312K07USA

PATIENT
  Age: 44 Year
  Sex: Male

DRUGS (1)
  1. REBIF [Suspect]
     Indication: MULTIPLE SCLEROSIS
     Dosage: 44 MCG, 3 IN 1 , SUBCUTANEOUS
     Route: 058
     Dates: start: 20061218

REACTIONS (5)
  - INTERVERTEBRAL DISC OPERATION [None]
  - OEDEMA PERIPHERAL [None]
  - POSTOPERATIVE THROMBOSIS [None]
  - SWELLING FACE [None]
  - THROMBOSIS [None]
